FAERS Safety Report 13338646 (Version 2)
Quarter: 2017Q2

REPORT INFORMATION
  Report Type: Report from Study
  Country: US (occurrence: US)
  Receive Date: 20170315
  Receipt Date: 20170428
  Transmission Date: 20170830
  Serious: No
  Sender: FDA-Public Use
  Company Number: US-UCBSA-2017009289

PATIENT
  Sex: Male

DRUGS (1)
  1. LACOSAMIDE. [Suspect]
     Active Substance: LACOSAMIDE
     Indication: SEIZURE
     Dosage: 200 MG, 2X/DAY (BID)
     Route: 048

REACTIONS (3)
  - Vertigo [Not Recovered/Not Resolved]
  - Seizure [Not Recovered/Not Resolved]
  - Migraine [Not Recovered/Not Resolved]
